FAERS Safety Report 5222360-4 (Version None)
Quarter: 2007Q1

REPORT INFORMATION
  Report Type: 
  Country: None (occurrence: None)
  Receive Date: 20070129
  Receipt Date: 20070116
  Transmission Date: 20070707
  Serious: Yes (Other)
  Sender: FDA-Public Use
  Company Number: JP-PFIZER INC-2007006471

PATIENT
  Age: 75 Year
  Sex: Male

DRUGS (4)
  1. MIGLITOL TABLET [Suspect]
     Indication: HYPERGLYCAEMIA
     Dosage: DAILY DOSE:100MG
     Route: 048
     Dates: start: 20061220, end: 20070112
  2. ACTOS [Concomitant]
     Indication: HYPERGLYCAEMIA
     Route: 048
  3. MYSLEE [Concomitant]
     Route: 048
  4. OLMETEC [Concomitant]
     Indication: HYPERTENSION
     Route: 048

REACTIONS (1)
  - HYPOGLYCAEMIA [None]
